FAERS Safety Report 5624435-4 (Version None)
Quarter: 2008Q1

REPORT INFORMATION
  Report Type: 
  Country: None (occurrence: None)
  Receive Date: 20080213
  Receipt Date: 20080206
  Transmission Date: 20080703
  Serious: Yes (Other)
  Sender: FDA-Public Use
  Company Number: US-WYE-H01938208

PATIENT
  Age: 58 Year
  Sex: Female
  Weight: 90.8 kg

DRUGS (1)
  1. ROBITUSSIN DM [Suspect]
     Indication: PHARYNGOLARYNGEAL PAIN
     Dosage: ^FOUR SIPS STRAIGHT FROM THE BOTTLE ONE TIME^
     Route: 048
     Dates: start: 20071222, end: 20071222

REACTIONS (6)
  - DYSPNOEA [None]
  - HYPERSENSITIVITY [None]
  - INCORRECT DOSE ADMINISTERED [None]
  - RASH ERYTHEMATOUS [None]
  - RASH PRURITIC [None]
  - URTICARIA [None]
